FAERS Safety Report 21583229 (Version 3)
Quarter: 2022Q4

REPORT INFORMATION
  Report Type: Spontaneous
  Country: US (occurrence: US)
  Receive Date: 20221111
  Receipt Date: 20221215
  Transmission Date: 20230112
  Serious: Yes (Other)
  Sender: FDA-Public Use
  Company Number: US-CELLTRION INC.-2022US018637

PATIENT

DRUGS (2)
  1. TRUXIMA [Suspect]
     Active Substance: RITUXIMAB-ABBS
     Indication: Dermatomyositis
     Dosage: 1000 MILLIGRAM, ONE INFUSION EVERY 4 MONTHS
     Dates: start: 20220504
  2. TRUXIMA [Suspect]
     Active Substance: RITUXIMAB-ABBS
     Dosage: 1000 MILLIGRAM, ONE INFUSION EVERY 4 MONTHS
     Dates: start: 20221017

REACTIONS (3)
  - Dermatomyositis [Unknown]
  - Lung disorder [Unknown]
  - Off label use [Unknown]
